FAERS Safety Report 5793619-7 (Version None)
Quarter: 2008Q2

REPORT INFORMATION
  Report Type: 
  Country: None (occurrence: None)
  Receive Date: 20080627
  Receipt Date: 20080616
  Transmission Date: 20081010
  Serious: Yes (Hospitalization)
  Sender: FDA-Public Use
  Company Number: AU-WATSON-2008-03638

PATIENT
  Age: 4 Year
  Sex: Female

DRUGS (1)
  1. OXYTROL (WATSON LABORATORIES) [Suspect]
     Indication: ENURESIS
     Dosage: 0.4 MG/KG, DAILY
     Route: 065

REACTIONS (4)
  - BLINDNESS TRANSIENT [None]
  - HYPERTENSION [None]
  - PARTIAL SEIZURES [None]
  - REVERSIBLE POSTERIOR LEUKOENCEPHALOPATHY SYNDROME [None]
